FAERS Safety Report 5926623-6 (Version None)
Quarter: 2008Q4

REPORT INFORMATION
  Report Type: 
  Country: None (occurrence: None)
  Receive Date: 20081022
  Receipt Date: 20081017
  Transmission Date: 20090506
  Serious: Yes (Other)
  Sender: FDA-Public Use
  Company Number: B0539947A

PATIENT
  Age: 58 Year
  Sex: Female

DRUGS (3)
  1. PAXIL [Suspect]
     Indication: DEPRESSIVE SYMPTOM
     Dosage: 10MG PER DAY
     Route: 048
     Dates: start: 20080829, end: 20080906
  2. U PAN [Suspect]
     Indication: ANXIETY
     Dosage: .5MG PER DAY
     Route: 048
     Dates: start: 20080829, end: 20080906
  3. UNKNOWN DRUG [Concomitant]
     Indication: DEMENTIA
     Route: 065

REACTIONS (8)
  - ABNORMAL BEHAVIOUR [None]
  - AMNESIA [None]
  - DEMENTIA [None]
  - DISORIENTATION [None]
  - ILL-DEFINED DISORDER [None]
  - LISTLESS [None]
  - SLEEP DISORDER [None]
  - SPEECH DISORDER [None]
